FAERS Safety Report 17724712 (Version 2)
Quarter: 2020Q2

REPORT INFORMATION
  Report Type: Spontaneous
  Country: US (occurrence: US)
  Receive Date: 20200429
  Receipt Date: 20200505
  Transmission Date: 20200714
  Serious: No
  Sender: FDA-Public Use
  Company Number: NVSC2020US114943

PATIENT
  Sex: Female

DRUGS (1)
  1. FEMARA [Suspect]
     Active Substance: LETROZOLE
     Indication: PRODUCT USED FOR UNKNOWN INDICATION
     Dosage: UNK
     Route: 065
     Dates: start: 20200409

REACTIONS (6)
  - Pain in extremity [Unknown]
  - Asthenia [Unknown]
  - Osteopenia [Unknown]
  - Pain [Unknown]
  - Abdominal pain [Unknown]
  - Hot flush [Unknown]
